FAERS Safety Report 8215396-2 (Version None)
Quarter: 2012Q1

REPORT INFORMATION
  Report Type: 
  Country: None (occurrence: None)
  Receive Date: 20120316
  Receipt Date: 20120305
  Transmission Date: 20120608
  Serious: Yes (Other)
  Sender: FDA-Public Use
  Company Number: BR-AMGEN-BRASP2012015419

PATIENT
  Age: 55 Year
  Sex: Female
  Weight: 84 kg

DRUGS (11)
  1. LEVOID [Concomitant]
     Dosage: 50 MG, UNK
  2. VITA-E                             /00110501/ [Concomitant]
     Dosage: UNK
  3. ENBREL [Suspect]
     Indication: RHEUMATOID ARTHRITIS
     Dosage: 25 MG, 2X/WEEK
     Route: 058
     Dates: start: 20100101
  4. ALGI TANDERIL [Concomitant]
     Dosage: UNK
  5. CALDE [Concomitant]
     Dosage: UNK
  6. OPTIVE [Concomitant]
     Dosage: UNK
  7. TANAKAN [Concomitant]
     Dosage: 120 MG, UNK
  8. TORAGESIC [Concomitant]
     Dosage: UNK
  9. ENALAPRIL MALEATE [Concomitant]
     Dosage: 20 MG, UNK
  10. OMEPRAZOLE [Concomitant]
     Dosage: 20 MG, UNK
  11. ALENIA [Concomitant]
     Dosage: UNK

REACTIONS (5)
  - GASTROOESOPHAGEAL REFLUX DISEASE [None]
  - BREAST MASS [None]
  - HERNIA [None]
  - PAIN [None]
  - MOVEMENT DISORDER [None]
